FAERS Safety Report 5009719-5 (Version None)
Quarter: 2006Q2

REPORT INFORMATION
  Report Type: 
  Country: None (occurrence: None)
  Receive Date: 20060524
  Receipt Date: 20060516
  Transmission Date: 20061013
  Serious: Yes (Other)
  Sender: FDA-Public Use
  Company Number: 2006SE02817

PATIENT
  Age: 28779 Day
  Sex: Female

DRUGS (7)
  1. ARIMIDEX [Suspect]
     Indication: BREAST CANCER
     Route: 048
     Dates: start: 20041201
  2. ZOMETA [Suspect]
     Indication: METASTASES TO BONE
     Route: 042
     Dates: start: 20050915, end: 20051215
  3. MORPHINE [Concomitant]
     Route: 030
  4. TRIATEC [Concomitant]
     Indication: ESSENTIAL HYPERTENSION
     Route: 048
  5. NEURONTIN [Concomitant]
     Indication: NEURALGIA
     Route: 048
  6. LASIX [Concomitant]
     Indication: ESSENTIAL HYPERTENSION
     Route: 048
  7. DIFIX [Concomitant]
     Indication: HYPOVITAMINOSIS
     Route: 048

REACTIONS (1)
  - HYPOCALCAEMIA [None]
